FAERS Safety Report 17817646 (Version 1)
Quarter: 2020Q2

REPORT INFORMATION
  Report Type: Spontaneous
  Country: FR (occurrence: FR)
  Receive Date: 20200522
  Receipt Date: 20200522
  Transmission Date: 20200714
  Serious: Yes (Other)
  Sender: FDA-Public Use
  Company Number: FR-009507513-2005FRA006837

PATIENT
  Age: 61 Year
  Sex: Female

DRUGS (4)
  1. KEYTRUDA [Suspect]
     Active Substance: PEMBROLIZUMAB
     Indication: NON-SMALL CELL LUNG CANCER
     Dosage: SOLUTION TO BE DILUTED, 200 MILLIGRAM, EVERY 3 WEEKS (Q3W)
     Route: 042
     Dates: start: 20190812
  2. INNOHEP [Concomitant]
     Active Substance: TINZAPARIN SODIUM
  3. ALIMTA [Concomitant]
     Active Substance: PEMETREXED DISODIUM
  4. ASPIRIN. [Concomitant]
     Active Substance: ASPIRIN

REACTIONS (4)
  - Hypophysitis [Recovered/Resolved]
  - Nausea [Recovered/Resolved]
  - Laboratory test abnormal [Recovered/Resolved]
  - General physical health deterioration [Recovered/Resolved]

NARRATIVE: CASE EVENT DATE: 202002
